FAERS Safety Report 8975808 (Version 2)
Quarter: 2013Q1

REPORT INFORMATION
  Report Type: Report from Study
  Country: FR (occurrence: FR)
  Receive Date: 20121219
  Receipt Date: 20130123
  Transmission Date: 20140127
  Serious: Yes (Other)
  Sender: FDA-Public Use
  Company Number: FR-ROCHE-1167588

PATIENT
  Age: 38 Year
  Sex: Male
  Weight: 73 kg

DRUGS (3)
  1. PEG-INTERFERON ALFA 2A [Suspect]
     Indication: CHRONIC HEPATITIS C
     Route: 058
     Dates: start: 20110317, end: 20110525
  2. RIBAVIRIN [Suspect]
     Indication: CHRONIC HEPATITIS C
     Route: 048
     Dates: start: 20110317, end: 20110525
  3. EPREX [Concomitant]
     Route: 065
     Dates: end: 201106

REACTIONS (3)
  - Thrombocytopenia [Recovering/Resolving]
  - Anaemia [Recovering/Resolving]
  - Haemorrhagic stroke [Recovered/Resolved with Sequelae]
